FAERS Safety Report 8260262-X (Version None)
Quarter: 2012Q2

REPORT INFORMATION
  Report Type: 
  Country: None (occurrence: None)
  Receive Date: 20120404
  Receipt Date: 20120326
  Transmission Date: 20120825
  Serious: Yes (Other)
  Sender: FDA-Public Use
  Company Number: JP-GILEAD-2012-0051456

PATIENT
  Sex: Male

DRUGS (5)
  1. HEPSERA [Suspect]
     Indication: HEPATITIS B
     Dosage: UNK
     Route: 048
     Dates: end: 20120106
  2. ZOLPIDEM [Concomitant]
     Indication: PRODUCT USED FOR UNKNOWN INDICATION
     Route: 048
  3. HEPSERA [Suspect]
     Route: 048
     Dates: end: 20120106
  4. BARACLUDE                          /03597801/ [Concomitant]
     Indication: HEPATITIS B
     Dosage: UNK
     Dates: start: 20120106
  5. ALPRAZOLAM [Concomitant]
     Indication: PRODUCT USED FOR UNKNOWN INDICATION
     Route: 048

REACTIONS (6)
  - FANCONI SYNDROME ACQUIRED [None]
  - BLOOD CREATININE INCREASED [None]
  - RENAL DISORDER [None]
  - BLOOD PHOSPHORUS DECREASED [None]
  - TUBULOINTERSTITIAL NEPHRITIS [None]
  - BLOOD ALKALINE PHOSPHATASE INCREASED [None]
